FAERS Safety Report 4868390-3 (Version None)
Quarter: 2005Q4

REPORT INFORMATION
  Report Type: 
  Country: None (occurrence: None)
  Receive Date: 20051229
  Receipt Date: 20051208
  Transmission Date: 20060501
  Serious: Yes (Hospitalization)
  Sender: FDA-Public Use
  Company Number: FR-GLAXOSMITHKLINE-B0403023A

PATIENT
  Age: 76 Year
  Sex: Male

DRUGS (20)
  1. CLAMOXYL [Suspect]
     Indication: TOE AMPUTATION
     Route: 048
     Dates: start: 20051105, end: 20051113
  2. RIFADIN [Suspect]
     Indication: TOE AMPUTATION
     Route: 042
     Dates: start: 20051105, end: 20051113
  3. TOPALGIC ( FRANCE ) [Concomitant]
     Indication: TOE AMPUTATION
     Route: 048
     Dates: start: 20051103, end: 20051105
  4. CLINDAMYCIN HCL [Concomitant]
     Indication: TOE AMPUTATION
     Route: 048
     Dates: start: 20051101, end: 20051104
  5. CIFLOX [Concomitant]
     Indication: TOE AMPUTATION
     Route: 042
     Dates: start: 20051101, end: 20051104
  6. ACETAMINOPHEN [Concomitant]
     Indication: TOE AMPUTATION
     Route: 048
     Dates: start: 20051103, end: 20051105
  7. PERFALGAN [Concomitant]
     Indication: TOE AMPUTATION
     Route: 042
     Dates: start: 20051108, end: 20051108
  8. KARDEGIC [Concomitant]
     Indication: TOE AMPUTATION
     Route: 065
     Dates: start: 20051109, end: 20051111
  9. ATARAX [Concomitant]
     Indication: TOE AMPUTATION
     Route: 065
     Dates: start: 20051106, end: 20051107
  10. MUCOMYST [Concomitant]
     Indication: TOE AMPUTATION
     Route: 065
     Dates: start: 20051106, end: 20051107
  11. TRIATEC [Concomitant]
     Dosage: 5MG PER DAY
     Route: 065
  12. AMLOR [Concomitant]
     Dosage: 5MG PER DAY
     Route: 065
  13. ZOCOR [Concomitant]
     Dosage: 40MG PER DAY
     Route: 065
  14. COZAAR [Concomitant]
     Dosage: 50MG PER DAY
     Route: 065
  15. BUMETANIDE [Concomitant]
     Dosage: 5MG PER DAY
     Route: 065
  16. CELECTOL [Concomitant]
     Dosage: 200MG PER DAY
     Route: 065
  17. NITRODERM [Concomitant]
     Route: 062
  18. ADANCOR [Concomitant]
     Dosage: 100MG PER DAY
     Route: 065
  19. INSULINE [Concomitant]
     Route: 065
  20. LOVENOX [Concomitant]
     Indication: TOE AMPUTATION
     Route: 065
     Dates: start: 20051101

REACTIONS (1)
  - VASCULITIS NECROTISING [None]
